FAERS Safety Report 8395452-9 (Version None)
Quarter: 2012Q2

REPORT INFORMATION
  Report Type: 
  Country: None (occurrence: None)
  Receive Date: 20120525
  Receipt Date: 20120525
  Transmission Date: 20120825
  Serious: Yes (Other)
  Sender: FDA-Public Use
  Company Number: None

PATIENT
  Age: 50 Year
  Sex: Male
  Weight: 72.5755 kg

DRUGS (1)
  1. VITAMIN D [Suspect]
     Indication: VITAMIN D DEFICIENCY
     Dosage: ONCE A WK ORAL
     Route: 048
     Dates: start: 20120313

REACTIONS (1)
  - RENAL PAIN [None]
